FAERS Safety Report 4813969-8 (Version None)
Quarter: 2005Q4

REPORT INFORMATION
  Report Type: 
  Country: None (occurrence: None)
  Receive Date: 20051028
  Receipt Date: 20041124
  Transmission Date: 20060501
  Serious: No
  Sender: FDA-Public Use
  Company Number: US-GLAXOSMITHKLINE-A0535154A

PATIENT
  Age: 72 Year
  Sex: Female

DRUGS (5)
  1. SEREVENT [Suspect]
     Indication: ASTHMA
     Dosage: 1PUFF TWICE PER DAY
     Route: 055
     Dates: start: 20040201
  2. NORVASC [Concomitant]
  3. DEMADEX [Concomitant]
  4. FLOVENT [Concomitant]
  5. ALBUTEROL [Concomitant]

REACTIONS (1)
  - PALPITATIONS [None]
